FAERS Safety Report 5465258-9 (Version None)
Quarter: 2007Q3

REPORT INFORMATION
  Report Type: 
  Country: None (occurrence: None)
  Receive Date: 20070924
  Receipt Date: 20070917
  Transmission Date: 20080115
  Serious: Yes (Other)
  Sender: FDA-Public Use
  Company Number: PHNR2007AU01876

PATIENT
  Sex: Female

DRUGS (6)
  1. EFFEXOR XR [Suspect]
     Dosage: 150 MG, UNK
     Route: 048
     Dates: start: 20060301
  2. MERSYNDOL [Suspect]
     Indication: MIGRAINE
  3. NIZORAL [Suspect]
     Indication: CANDIDIASIS
  4. ACETAMINOPHEN W/ CODEINE [Suspect]
     Indication: MIGRAINE
  5. TRAMADOL HCL [Suspect]
     Indication: HEADACHE
     Dosage: 200 MG, QD
  6. CAFERGOT [Suspect]
     Indication: MIGRAINE

REACTIONS (1)
  - CONVULSION [None]
